FAERS Safety Report 10265006 (Version 1)
Quarter: 2014Q2

REPORT INFORMATION
  Report Type: Spontaneous
  Country: US (occurrence: US)
  Receive Date: 20140627
  Receipt Date: 20140627
  Transmission Date: 20141212
  Serious: No
  Sender: FDA-Public Use
  Company Number: US-PFIZER INC-2014174290

PATIENT
  Age: 67 Year
  Sex: Female
  Weight: 58.96 kg

DRUGS (7)
  1. PROTONIX [Suspect]
     Dosage: UNK
     Dates: start: 201301, end: 2013
  2. LASIX [Concomitant]
     Dosage: UNK
  3. COUMADIN [Concomitant]
     Indication: PULMONARY THROMBOSIS
     Dosage: UNK
  4. TIZANIDINE [Concomitant]
     Dosage: UNK
  5. KLOR-CON [Concomitant]
     Dosage: UNK
  6. VITAMIN B12 [Concomitant]
     Dosage: UNK, MONTHLY
  7. VICODIN ES [Concomitant]
     Dosage: UNK
     Dates: start: 1984

REACTIONS (1)
  - Ulcer [Unknown]
